FAERS Safety Report 18381327 (Version 1)
Quarter: 2020Q4

REPORT INFORMATION
  Report Type: Spontaneous
  Country: ES (occurrence: ES)
  Receive Date: 20201014
  Receipt Date: 20201014
  Transmission Date: 20210114
  Serious: Yes (Other)
  Sender: FDA-Public Use
  Company Number: ES-ACCORD-204957

PATIENT
  Age: 56 Year
  Sex: Female
  Weight: 111 kg

DRUGS (2)
  1. PACLITAXEL/PACLITAXEL LIPOSOME [Suspect]
     Active Substance: PACLITAXEL
     Indication: BREAST CANCER
     Dosage: 80 MG PER SQUARE METER WEEKLY
     Route: 041
     Dates: start: 20200916, end: 20200916
  2. GABAPENTIN AUROVITAS [Concomitant]
     Dosage: STRENGTH-300 MG, 90 CAPSULES

REACTIONS (4)
  - Rash [Recovered/Resolved]
  - Hypotension [Recovered/Resolved]
  - Type I hypersensitivity [Recovered/Resolved]
  - Chest discomfort [Recovered/Resolved]

NARRATIVE: CASE EVENT DATE: 20200916
